FAERS Safety Report 5548953-2 (Version None)
Quarter: 2007Q4

REPORT INFORMATION
  Report Type: 
  Country: None (occurrence: None)
  Receive Date: 20071211
  Receipt Date: 20070322
  Transmission Date: 20080405
  Serious: No
  Sender: FDA-Public Use
  Company Number: US-AMGEN-KDL205403

PATIENT
  Sex: Female
  Weight: 54.9 kg

DRUGS (4)
  1. ENBREL [Suspect]
     Route: 058
     Dates: start: 20061004
  2. SELENIUM [Suspect]
  3. METHOTREXATE [Concomitant]
     Route: 058
     Dates: start: 20060101
  4. VITAMIN CAP [Concomitant]

REACTIONS (1)
  - INJECTION SITE REACTION [None]
